FAERS Safety Report 12576222 (Version 1)
Quarter: 2016Q3

REPORT INFORMATION
  Report Type: Report from Study
  Country: US (occurrence: US)
  Receive Date: 20160720
  Receipt Date: 20160720
  Transmission Date: 20161109
  Serious: Yes (Other)
  Sender: FDA-Public Use
  Company Number: US-ABBVIE-16K-163-1674254-00

PATIENT
  Age: 62 Year
  Sex: Female
  Weight: 79.45 kg

DRUGS (2)
  1. HUMIRA [Suspect]
     Active Substance: ADALIMUMAB
     Route: 058
     Dates: start: 20160602
  2. HUMIRA [Suspect]
     Active Substance: ADALIMUMAB
     Indication: COLITIS ULCERATIVE
     Route: 058
     Dates: start: 20150901, end: 20160602

REACTIONS (4)
  - Intestinal polyp [Recovered/Resolved]
  - Colitis ulcerative [Recovered/Resolved]
  - Rectal haemorrhage [Recovered/Resolved with Sequelae]
  - Drug ineffective [Recovered/Resolved with Sequelae]

NARRATIVE: CASE EVENT DATE: 201509
